FAERS Safety Report 7445081-6 (Version None)
Quarter: 2011Q2

REPORT INFORMATION
  Report Type: 
  Country: None (occurrence: None)
  Receive Date: 20110429
  Receipt Date: 20110418
  Transmission Date: 20111010
  Serious: Yes (Hospitalization)
  Sender: FDA-Public Use
  Company Number: PT-JNJFOC-20110409911

PATIENT
  Sex: Female
  Weight: 40 kg

DRUGS (13)
  1. DEXAMETHASONE [Suspect]
     Indication: MULTIPLE MYELOMA
     Route: 065
  2. PANTOPRAZOLE SODIUM [Concomitant]
     Indication: GASTROINTESTINAL DISORDER THERAPY
  3. PARACETAMOL [Suspect]
     Indication: PAIN
     Route: 048
  4. PARACETAMOL [Suspect]
     Route: 042
  5. SODIUM CITRATE [Concomitant]
     Indication: CONSTIPATION
  6. ONDANSETRON [Concomitant]
     Indication: VOMITING
     Route: 065
  7. CAFFEINE W/CODEINE PHOSPHATE/PARACETAMOL [Concomitant]
     Indication: BACK PAIN
  8. MAGNESIUM HYDROXIDE [Concomitant]
     Route: 065
  9. ACETYLSALICYLIC ACID SRT [Concomitant]
     Indication: THROMBOSIS PROPHYLAXIS
  10. METOCLOPRAMIDE [Concomitant]
     Indication: PROPHYLAXIS OF NAUSEA AND VOMITING
  11. LENALIDOMIDE [Suspect]
     Indication: MULTIPLE MYELOMA
     Dosage: 1 PER DAY
     Route: 048
  12. ALLOPURINOL [Suspect]
     Indication: HYPERURICAEMIA
     Dosage: 1 PER DAY
     Route: 048
  13. TRAMAL 100 [Suspect]
     Indication: BACK PAIN
     Dosage: 3 TIMES A DAY
     Route: 042

REACTIONS (4)
  - ALANINE AMINOTRANSFERASE INCREASED [None]
  - VOMITING [None]
  - RENAL FAILURE ACUTE [None]
  - PAIN [None]
